FAERS Safety Report 8778082 (Version 4)
Quarter: 2012Q4

REPORT INFORMATION
  Report Type: 
  Country: US (occurrence: US)
  Receive Date: 20120911
  Receipt Date: 20121211
  Transmission Date: 20130627
  Serious: Yes (Hospitalization)
  Sender: FDA-Public Use
  Company Number: US-JNJFOC-20120901191

PATIENT
  Sex: Female
  Weight: 47.63 kg

DRUGS (1)
  1. XARELTO [Suspect]
     Indication: THROMBOSIS PROPHYLAXIS
     Route: 048
     Dates: start: 20120828, end: 20120829

REACTIONS (10)
  - Dehydration [Recovered/Resolved]
  - Haematemesis [Recovered/Resolved]
  - Dizziness [Recovered/Resolved]
  - Malaise [Recovered/Resolved]
  - Dizziness [Recovered/Resolved]
  - Vision blurred [Recovered/Resolved]
  - Melaena [Recovered/Resolved]
  - Blood pressure decreased [Recovered/Resolved]
  - Blood count abnormal [Recovered/Resolved]
  - Anaemia [Recovered/Resolved]
